FAERS Safety Report 7161347-1 (Version None)
Quarter: 2010Q4

REPORT INFORMATION
  Report Type: 
  Country: None (occurrence: None)
  Receive Date: 20101210
  Receipt Date: 20101210
  Transmission Date: 20110411
  Serious: Yes (Death)
  Sender: FDA-Public Use
  Company Number: None

PATIENT

DRUGS (1)
  1. XELODA [Suspect]
     Indication: GASTRIC CANCER
     Dosage: 100MG BID BUCCAL
     Route: 002
     Dates: start: 20100909, end: 20101101

REACTIONS (1)
  - DEATH [None]
